FAERS Safety Report 4298768-0 (Version None)
Quarter: 2004Q1

REPORT INFORMATION
  Report Type: 
  Country: None (occurrence: None)
  Receive Date: 20040126
  Receipt Date: 20031022
  Transmission Date: 20041129
  Serious: No
  Sender: FDA-Public Use
  Company Number: USA031050645

PATIENT
  Age: 7 Year
  Sex: Male
  Weight: 31 kg

DRUGS (3)
  1. STRATTERA [Suspect]
     Dosage: 18 MG/1 IN THE MORNING
  2. PRILOSEC [Concomitant]
  3. ZYRTEC [Concomitant]

REACTIONS (5)
  - DYSPNOEA [None]
  - HEART RATE INCREASED [None]
  - RETCHING [None]
  - SOMNOLENCE [None]
  - THIRST [None]
